FAERS Safety Report 8950665 (Version 1)
Quarter: 2012Q4

REPORT INFORMATION
  Report Type: Report from Study
  Country: CA (occurrence: CA)
  Receive Date: 20121207
  Receipt Date: 20121207
  Transmission Date: 20130627
  Serious: Yes (Other)
  Sender: FDA-Public Use
  Company Number: CA-JNJFOC-20121114027

PATIENT
  Sex: Male
  Weight: 87.54 kg

DRUGS (2)
  1. REMICADE [Suspect]
     Indication: CROHN^S DISEASE
     Route: 042
     Dates: start: 200904
  2. DICETEL [Concomitant]
     Route: 065

REACTIONS (2)
  - Cyst [Not Recovered/Not Resolved]
  - Rash [Not Recovered/Not Resolved]
